APPROVED DRUG PRODUCT: LOSARTAN POTASSIUM
Active Ingredient: LOSARTAN POTASSIUM
Strength: 50MG
Dosage Form/Route: TABLET;ORAL
Application: A078232 | Product #002 | TE Code: AB
Applicant: LUPIN LTD
Approved: Oct 6, 2010 | RLD: No | RS: No | Type: RX